FAERS Safety Report 5900747-1 (Version None)
Quarter: 2008Q3

REPORT INFORMATION
  Report Type: 
  Country: None (occurrence: None)
  Receive Date: 20080922
  Receipt Date: 20080909
  Transmission Date: 20090109
  Serious: Yes (Life-Threatening, Hospitalization)
  Sender: FDA-Public Use
  Company Number: 200813455

PATIENT
  Age: 31 Year
  Sex: Female
  Weight: 62 kg

DRUGS (1)
  1. RHOPHYLAC [Suspect]
     Indication: ACCIDENTAL EXPOSURE
     Dosage: 200 UG DAILY IM
     Route: 030
     Dates: start: 20080403, end: 20080403

REACTIONS (11)
  - ACCIDENTAL EXPOSURE [None]
  - BLOOD ALBUMIN DECREASED [None]
  - BLOOD CALCIUM DECREASED [None]
  - BLOOD CREATININE DECREASED [None]
  - BLOOD LACTATE DEHYDROGENASE INCREASED [None]
  - BLOOD TRIGLYCERIDES INCREASED [None]
  - BLOOD UREA DECREASED [None]
  - DERMATITIS CONTACT [None]
  - DRUG EXPOSURE DURING PREGNANCY [None]
  - POLYMORPHIC ERUPTION OF PREGNANCY [None]
  - TOXIC SKIN ERUPTION [None]
